FAERS Safety Report 6197229-1 (Version None)
Quarter: 2009Q2

REPORT INFORMATION
  Report Type: 
  Country: None (occurrence: None)
  Receive Date: 20090521
  Receipt Date: 20070627
  Transmission Date: 20091009
  Serious: Yes (Hospitalization, Other)
  Sender: FDA-Public Use
  Company Number: US-ASTRAZENECA-2006UW25180

PATIENT
  Age: 3777 Day
  Sex: Female
  Weight: 36.1 kg

DRUGS (29)
  1. SEROQUEL [Suspect]
     Indication: BIPOLAR DISORDER
     Dosage: 25 MG TO 1400 MG
     Route: 048
     Dates: start: 20021003, end: 20060719
  2. SEROQUEL [Suspect]
     Indication: PSYCHOTIC DISORDER
     Dosage: 25 MG TO 1400 MG
     Route: 048
     Dates: start: 20021003, end: 20060719
  3. SEROQUEL [Suspect]
     Indication: MOOD SWINGS
     Dosage: 25 MG TO 1400 MG
     Route: 048
     Dates: start: 20021003, end: 20060719
  4. SEROQUEL [Suspect]
     Route: 048
     Dates: start: 20030101, end: 20060101
  5. SEROQUEL [Suspect]
     Route: 048
     Dates: start: 20030101, end: 20060101
  6. SEROQUEL [Suspect]
     Route: 048
     Dates: start: 20030101, end: 20060101
  7. RISPERDAL [Concomitant]
     Route: 065
     Dates: start: 20070101
  8. ABILIFY [Concomitant]
     Route: 065
     Dates: start: 20040101, end: 20050101
  9. GEODON [Concomitant]
     Route: 065
     Dates: start: 20050101, end: 20060101
  10. TRILEPTAL [Concomitant]
     Route: 048
  11. LAMICTAL [Concomitant]
     Route: 048
  12. ADDERALL XR 20 [Concomitant]
     Route: 048
  13. DEPAKOTE [Concomitant]
     Route: 048
  14. RITALIN [Concomitant]
     Route: 048
  15. CLONIDINE [Concomitant]
     Route: 048
  16. FOCALIN [Concomitant]
     Route: 048
  17. ZYPREXA [Concomitant]
     Route: 048
  18. TRAZODONE HCL [Concomitant]
     Route: 048
  19. WELLBUTRIN [Concomitant]
     Route: 065
  20. LITHOBID [Concomitant]
     Route: 048
  21. ATIVAN [Concomitant]
     Indication: AGITATION
     Dosage: 1-2 MG
     Route: 048
  22. ATIVAN [Concomitant]
     Dosage: 1-2 MG
     Route: 030
  23. VISTARIL [Concomitant]
     Dosage: 25-50 MG
     Route: 048
  24. VISTARIL [Concomitant]
     Dosage: 25-50 MG
     Route: 030
  25. MYLANTA [Concomitant]
     Route: 048
  26. TYLENOL [Concomitant]
     Route: 048
  27. FLOMAX [Concomitant]
     Route: 045
  28. BENADRYL [Concomitant]
     Route: 048
  29. MILK OF MAGNESIA TAB [Concomitant]
     Indication: CONSTIPATION
     Route: 048

REACTIONS (28)
  - ABDOMINAL PAIN [None]
  - ABDOMINAL PAIN UPPER [None]
  - ACNE [None]
  - AMENORRHOEA [None]
  - ATTENTION DEFICIT/HYPERACTIVITY DISORDER [None]
  - BIPOLAR DISORDER [None]
  - BUNION [None]
  - CYSTITIS [None]
  - DERMATITIS ATOPIC [None]
  - EAR PAIN [None]
  - GASTROENTERITIS [None]
  - HOMICIDAL IDEATION [None]
  - MANIA [None]
  - OPPOSITIONAL DEFIANT DISORDER [None]
  - OROPHARYNGEAL PAIN [None]
  - PERSONALITY DISORDER [None]
  - PHONOLOGICAL DISORDER [None]
  - PYREXIA [None]
  - RASH [None]
  - SEDATION [None]
  - SEXUAL ABUSE [None]
  - SUICIDAL IDEATION [None]
  - SUICIDE ATTEMPT [None]
  - TINEA INFECTION [None]
  - TONSILLITIS [None]
  - TYPE 2 DIABETES MELLITUS [None]
  - URINARY TRACT INFECTION [None]
  - WEIGHT INCREASED [None]
